FAERS Safety Report 6212986 (Version 5)
Quarter: 2015Q1

REPORT INFORMATION
  Report Type: Spontaneous
  Country: US (occurrence: US)
  Receive Date: 20070111
  Receipt Date: 20150304
  Transmission Date: 20150721
  Serious: Yes (Congenital Anomaly, Other)
  Sender: FDA-Public Use
  Company Number: US-ELI_LILLY_AND_COMPANY-US200602001021

PATIENT
  Age: 0 Year
  Sex: Female
  Weight: 1.59 kg

DRUGS (10)
  1. PRENATAL VITAMINS                  /02014401/ [Concomitant]
     Active Substance: VITAMINS
     Route: 064
  2. ALBUTEROL                          /00139501/ [Concomitant]
     Active Substance: ALBUTEROL
     Route: 064
  3. FLONASE                            /00908302/ [Concomitant]
     Route: 064
  4. PROZAC [Suspect]
     Active Substance: FLUOXETINE HYDROCHLORIDE
     Indication: ANXIETY
  5. FLONASE                            /00908302/ [Concomitant]
     Route: 064
  6. PROZAC [Suspect]
     Active Substance: FLUOXETINE HYDROCHLORIDE
     Indication: OBSESSIVE-COMPULSIVE DISORDER
     Dosage: UNK
     Route: 064
  7. PROZAC [Suspect]
     Active Substance: FLUOXETINE HYDROCHLORIDE
     Indication: OBSESSIVE-COMPULSIVE DISORDER
     Dosage: UNK
     Route: 064
  8. PRENATAL VITAMINS                  /02014401/ [Concomitant]
     Active Substance: VITAMINS
     Route: 064
  9. ALBUTEROL                          /00139501/ [Concomitant]
     Active Substance: ALBUTEROL
     Route: 064
  10. PROZAC [Suspect]
     Active Substance: FLUOXETINE HYDROCHLORIDE
     Indication: ANXIETY

REACTIONS (11)
  - Heart disease congenital [Unknown]
  - Foetal distress syndrome [Unknown]
  - Ventricular septal defect [Not Recovered/Not Resolved]
  - Respiratory arrest [Recovering/Resolving]
  - Foetal exposure during pregnancy [Unknown]
  - Coarctation of the aorta [Recovered/Resolved]
  - Small for dates baby [Unknown]
  - Placental insufficiency [Not Recovered/Not Resolved]
  - Premature baby [Recovering/Resolving]
  - Aorta hypoplasia [Not Recovered/Not Resolved]
  - Dacryostenosis acquired [Unknown]

NARRATIVE: CASE EVENT DATE: 200512
